FAERS Safety Report 14147670 (Version 1)
Quarter: 2017Q4

REPORT INFORMATION
  Report Type: Report from Study
  Country: None (occurrence: CA)
  Receive Date: 20171101
  Receipt Date: 20171101
  Transmission Date: 20180321
  Serious: Yes (Hospitalization)
  Sender: FDA-Public Use
  Company Number: CA-ABBVIE-17K-028-2145698-00

PATIENT
  Age: 51 Year
  Sex: Male

DRUGS (1)
  1. HUMIRA [Suspect]
     Active Substance: ADALIMUMAB
     Indication: PAIN
     Route: 058
     Dates: start: 20170131, end: 2017

REACTIONS (9)
  - Oropharyngeal pain [Not Recovered/Not Resolved]
  - Dyspnoea [Not Recovered/Not Resolved]
  - Crohn^s disease [Unknown]
  - Swelling face [Recovering/Resolving]
  - Ankylosing spondylitis [Not Recovered/Not Resolved]
  - Blood pressure systolic increased [Recovering/Resolving]
  - Oedema peripheral [Recovering/Resolving]
  - Pharyngeal inflammation [Not Recovered/Not Resolved]
  - Pharyngeal oedema [Recovering/Resolving]

NARRATIVE: CASE EVENT DATE: 2017
